FAERS Safety Report 10876305 (Version 2)
Quarter: 2015Q1

REPORT INFORMATION
  Report Type: Report from Study
  Country: US (occurrence: US)
  Receive Date: 20150227
  Receipt Date: 20150311
  Transmission Date: 20150721
  Serious: No
  Sender: FDA-Public Use
  Company Number: US-AMGEN-USASP2014024847

PATIENT
  Age: 50 Year
  Sex: Female

DRUGS (1)
  1. ENBREL [Suspect]
     Active Substance: ETANERCEPT
     Indication: ANKYLOSING SPONDYLITIS
     Dosage: 50 MG ONCE WEEKLY
     Route: 065
     Dates: start: 20140110, end: 20150201

REACTIONS (7)
  - Drug effect incomplete [Not Recovered/Not Resolved]
  - Scar [Recovered/Resolved]
  - Injection site discolouration [Recovered/Resolved]
  - Pain [Not Recovered/Not Resolved]
  - Injection site swelling [Recovered/Resolved]
  - Injection site induration [Recovered/Resolved]
  - Breast hyperplasia [Recovered/Resolved]

NARRATIVE: CASE EVENT DATE: 20140309
